FAERS Safety Report 9901293 (Version 4)
Quarter: 2014Q4

REPORT INFORMATION
  Report Type: Spontaneous
  Country: US (occurrence: US)
  Receive Date: 20140217
  Receipt Date: 20141209
  Transmission Date: 20150529
  Serious: Yes (Other)
  Sender: FDA-Public Use
  Company Number: US-BAYER-2014-024407

PATIENT
  Age: 46 Year
  Sex: Female

DRUGS (10)
  1. MIRENA [Suspect]
     Active Substance: LEVONORGESTREL
     Indication: CONTRACEPTION
     Dosage: 20 MCG/24HR, CONT
     Route: 015
     Dates: start: 20090216, end: 20130201
  2. ATENOLOL. [Concomitant]
     Active Substance: ATENOLOL
     Route: 048
  3. AMITIZA [Concomitant]
     Active Substance: LUBIPROSTONE
     Route: 048
  4. AVAPRO [Concomitant]
     Active Substance: IRBESARTAN
     Route: 048
  5. VALTREX [Concomitant]
     Active Substance: VALACYCLOVIR HYDROCHLORIDE
     Dosage: 500 MG, BID
     Route: 048
  6. TORADOL [Concomitant]
     Active Substance: KETOROLAC TROMETHAMINE
  7. FENTANYL. [Concomitant]
     Active Substance: FENTANYL
  8. SINGULAIR [Concomitant]
     Active Substance: MONTELUKAST SODIUM
     Route: 048
  9. ALPRAZOLAM. [Concomitant]
     Active Substance: ALPRAZOLAM
     Dosage: 0.5 MG, QD
     Route: 048
  10. OMEPRAZOLE. [Concomitant]
     Active Substance: OMEPRAZOLE
     Dosage: 20 MG, BID
     Route: 048

REACTIONS (11)
  - Device failure [None]
  - Injury [None]
  - Pain [None]
  - Emotional distress [None]
  - Medical device discomfort [None]
  - Scar [None]
  - Procedural pain [None]
  - Anxiety [Not Recovered/Not Resolved]
  - Crying [None]
  - Medical device pain [None]
  - Depression [Not Recovered/Not Resolved]

NARRATIVE: CASE EVENT DATE: 20130201
